FAERS Safety Report 11644990 (Version 1)
Quarter: 2015Q4

REPORT INFORMATION
  Report Type: Spontaneous
  Country: MX (occurrence: MX)
  Receive Date: 20151020
  Receipt Date: 20151020
  Transmission Date: 20160304
  Serious: Yes (Other)
  Sender: FDA-Public Use
  Company Number: PHHY2015MX134463

PATIENT
  Age: 59 Year
  Sex: Female

DRUGS (1)
  1. NILOTINIB [Suspect]
     Active Substance: NILOTINIB
     Indication: CHRONIC MYELOID LEUKAEMIA
     Dosage: 400 MG, Q12H
     Route: 065

REACTIONS (6)
  - Rash erythematous [Recovering/Resolving]
  - Dermatosis [Not Recovered/Not Resolved]
  - Rash papular [Recovering/Resolving]
  - Keratosis follicular [Unknown]
  - Rash pruritic [Recovering/Resolving]
  - Keratosis pilaris [Unknown]
